FAERS Safety Report 8941209 (Version 2)
Quarter: 2013Q1

REPORT INFORMATION
  Report Type: Report from Study
  Country: US (occurrence: US)
  Receive Date: 20121203
  Receipt Date: 20130207
  Transmission Date: 20140127
  Serious: Yes (Hospitalization)
  Sender: FDA-Public Use
  Company Number: US-VERTEX PHARMACEUTICALS INC.-2012-024940

PATIENT
  Age: 36 None
  Sex: Male

DRUGS (2)
  1. VX-770 [Suspect]
     Indication: CYSTIC FIBROSIS
     Dosage: 150 MG, BID
     Route: 048
     Dates: start: 20121003
  2. INSULIN [Suspect]
     Indication: DIABETES MELLITUS

REACTIONS (2)
  - Diabetic coma [Recovered/Resolved]
  - Brain injury [Unknown]
